FAERS Safety Report 24360706 (Version 4)
Quarter: 2024Q4

REPORT INFORMATION
  Report Type: Report from Study
  Country: US (occurrence: US)
  Receive Date: 20240925
  Receipt Date: 20241114
  Transmission Date: 20250115
  Serious: Yes (Other)
  Sender: ACADIA PHARMACEUTICALS
  Company Number: US-ACADIA PHARMACEUTICALS INC.-ACA-2024-PIM-005685

PATIENT
  Age: 71 Year
  Sex: Female

DRUGS (2)
  1. NUPLAZID [Suspect]
     Active Substance: PIMAVANSERIN TARTRATE
     Indication: Parkinson^s disease psychosis
     Dosage: 34 MILLIGRAM, QD
     Route: 048
     Dates: start: 202408
  2. NUPLAZID [Suspect]
     Active Substance: PIMAVANSERIN TARTRATE
     Indication: Parkinson^s disease
     Dosage: 34 MILLIGRAM, QD
     Route: 048
     Dates: start: 20241009

REACTIONS (9)
  - Hallucination [Not Recovered/Not Resolved]
  - Hallucination, visual [Recovered/Resolved]
  - Feeling drunk [Not Recovered/Not Resolved]
  - Dizziness [Not Recovered/Not Resolved]
  - Tremor [Not Recovered/Not Resolved]
  - Brain fog [Not Recovered/Not Resolved]
  - Therapy interrupted [Not Recovered/Not Resolved]
  - Confusional state [Not Recovered/Not Resolved]
  - Product dose omission issue [Unknown]

NARRATIVE: CASE EVENT DATE: 20241012
